FAERS Safety Report 16180547 (Version 1)
Quarter: 2019Q2

REPORT INFORMATION
  Report Type: Spontaneous
  Country: US (occurrence: US)
  Receive Date: 20190410
  Receipt Date: 20190410
  Transmission Date: 20190711
  Serious: No
  Sender: FDA-Public Use
  Company Number: US-ASTRAZENECA-2019SE40795

PATIENT

DRUGS (5)
  1. FASLODEX [Suspect]
     Active Substance: FULVESTRANT
     Indication: BREAST CANCER
     Dosage: UNKNOWN DOSE AND FREQUENCY
     Route: 030
  2. XGEVA [Concomitant]
     Active Substance: DENOSUMAB
  3. NORCO [Concomitant]
     Active Substance: ACETAMINOPHEN\HYDROCODONE BITARTRATE
     Dosage: AS REQUIRED
  4. IBRANCE [Suspect]
     Active Substance: PALBOCICLIB
     Indication: BREAST CANCER
     Route: 048
     Dates: start: 20181122, end: 20181209
  5. IBRANCE [Suspect]
     Active Substance: PALBOCICLIB
     Indication: BREAST CANCER
     Route: 048
     Dates: start: 20181226

REACTIONS (6)
  - Bone pain [Unknown]
  - Chest discomfort [Unknown]
  - Breast pain [Unknown]
  - Chest pain [Unknown]
  - Breast discomfort [Unknown]
  - Discomfort [Unknown]
